FAERS Safety Report 11432860 (Version 3)
Quarter: 2015Q4

REPORT INFORMATION
  Report Type: Spontaneous
  Country: US (occurrence: US)
  Receive Date: 20150828
  Receipt Date: 20151112
  Transmission Date: 20160304
  Serious: Yes (Hospitalization)
  Sender: FDA-Public Use
  Company Number: US-GLAXOSMITHKLINE-A0154304A

PATIENT
  Age: 56 Year
  Sex: Female
  Weight: 90 kg

DRUGS (7)
  1. ADVAIR DISKUS [Suspect]
     Active Substance: FLUTICASONE PROPIONATE\SALMETEROL XINAFOATE
     Indication: CHRONIC OBSTRUCTIVE PULMONARY DISEASE
     Dosage: 1 PUFF(S), BID
     Route: 055
     Dates: start: 200104
  2. ADVAIR DISKUS [Suspect]
     Active Substance: FLUTICASONE PROPIONATE\SALMETEROL XINAFOATE
     Dosage: UNK
  3. ADVAIR DISKUS [Suspect]
     Active Substance: FLUTICASONE PROPIONATE\SALMETEROL XINAFOATE
     Dosage: 1 PUFF(S), BID
     Dates: start: 1995
  4. PREDNISONE. [Concomitant]
     Active Substance: PREDNISONE
  5. ALEVE [Concomitant]
     Active Substance: NAPROXEN SODIUM
  6. PROVENTIL [Concomitant]
     Active Substance: ALBUTEROL
  7. BUDESONIDE. [Concomitant]
     Active Substance: BUDESONIDE

REACTIONS (11)
  - Fibromyalgia [Unknown]
  - Peripheral swelling [Unknown]
  - Product quality issue [Unknown]
  - Dyspnoea [Not Recovered/Not Resolved]
  - Incorrect dose administered [Unknown]
  - Joint stiffness [Unknown]
  - Arthralgia [Unknown]
  - Oropharyngeal pain [Unknown]
  - Myalgia [Unknown]
  - Malaise [Unknown]
  - Device issue [Unknown]

NARRATIVE: CASE EVENT DATE: 200106
